FAERS Safety Report 9542468 (Version 1)
Quarter: 2013Q3

REPORT INFORMATION
  Report Type: Spontaneous
  Country: US (occurrence: US)
  Receive Date: 20130923
  Receipt Date: 20130923
  Transmission Date: 20140515
  Serious: No
  Sender: FDA-Public Use
  Company Number: US-MYLANLABS-2013S1006322

PATIENT
  Age: 82 Year
  Sex: Female

DRUGS (1)
  1. NITROGLYCERIN TRANSDERMAL SYSTEM [Suspect]
     Dosage: APPLIES DAILY FOR 12 HOURS
     Route: 062
     Dates: start: 201209

REACTIONS (3)
  - Application site pain [Not Recovered/Not Resolved]
  - Skin exfoliation [Not Recovered/Not Resolved]
  - Application site erythema [Not Recovered/Not Resolved]
